FAERS Safety Report 23386949 (Version 1)
Quarter: 2024Q1

REPORT INFORMATION
  Report Type: Spontaneous
  Country: US (occurrence: US)
  Receive Date: 20240110
  Receipt Date: 20240110
  Transmission Date: 20240410
  Serious: No
  Sender: FDA-Public Use
  Company Number: US-SANOFI-01897553

PATIENT
  Age: 56 Year
  Sex: Female

DRUGS (1)
  1. TOUJEO MAX [Suspect]
     Active Substance: INSULIN GLARGINE
     Indication: Diabetes mellitus
     Dosage: 26 UNITS MORNING AND 44 UNITS BEDTIME

REACTIONS (2)
  - Off label use [Unknown]
  - Inappropriate schedule of product administration [Unknown]
